FAERS Safety Report 8950854 (Version 1)
Quarter: 2012Q4

REPORT INFORMATION
  Report Type: Spontaneous
  Country: US (occurrence: None)
  Receive Date: 20121130
  Receipt Date: 20121130
  Transmission Date: 20130627
  Serious: Yes (Life-Threatening, Hospitalization, Disabling, Other)
  Sender: FDA-Public Use
  Company Number: None

PATIENT
  Age: 47 Year
  Sex: Male
  Weight: 72.58 kg

DRUGS (1)
  1. KLONOPIN [Suspect]
     Indication: ANXIETY
     Dates: start: 20070101, end: 20120301

REACTIONS (7)
  - Suicide attempt [None]
  - Drug dependence [None]
  - Drug abuse [None]
  - Withdrawal syndrome [None]
  - Road traffic accident [None]
  - Mental impairment [None]
  - Cognitive disorder [None]
